FAERS Safety Report 13002341 (Version 1)
Quarter: 2016Q4

REPORT INFORMATION
  Report Type: Spontaneous
  Country: US (occurrence: US)
  Receive Date: 20161206
  Receipt Date: 20161206
  Transmission Date: 20170207
  Serious: No
  Sender: FDA-Public Use
  Company Number: US-BAUSCH-BL-2015-030448

PATIENT
  Age: 16 Year
  Sex: Male

DRUGS (3)
  1. ONEXTON [Suspect]
     Active Substance: BENZOYL PEROXIDE\CLINDAMYCIN PHOSPHATE
     Indication: ACNE
     Route: 061
     Dates: start: 201510
  2. TRETINOIN. [Concomitant]
     Active Substance: TRETINOIN
     Indication: ACNE
     Route: 061
     Dates: start: 201510
  3. CERAVE MOISTURIZING CREAM [Concomitant]
     Active Substance: COSMETICS
     Indication: THERAPEUTIC SKIN CARE TOPICAL
     Route: 061

REACTIONS (2)
  - Burning sensation [Not Recovered/Not Resolved]
  - Skin irritation [Not Recovered/Not Resolved]

NARRATIVE: CASE EVENT DATE: 201510
